FAERS Safety Report 12265606 (Version 1)
Quarter: 2016Q2

REPORT INFORMATION
  Report Type: Spontaneous
  Country: CN (occurrence: CN)
  Receive Date: 20160413
  Receipt Date: 20160413
  Transmission Date: 20160815
  Serious: Yes (Other)
  Sender: FDA-Public Use
  Company Number: CN-BAYER-2015-408718

PATIENT
  Age: 61 Year
  Sex: Male

DRUGS (1)
  1. NEXAVAR [Suspect]
     Active Substance: SORAFENIB
     Indication: RENAL CELL CARCINOMA
     Dosage: 400 MG, BID
     Route: 048
     Dates: start: 200601, end: 201601

REACTIONS (6)
  - Rash [Not Recovered/Not Resolved]
  - Diarrhoea [Recovered/Resolved]
  - Cerebral infarction [Recovered/Resolved]
  - Metastases to lung [Recovering/Resolving]
  - Erectile dysfunction [Not Recovered/Not Resolved]
  - Nuclear magnetic resonance imaging abnormal [None]

NARRATIVE: CASE EVENT DATE: 2006
